FAERS Safety Report 6874100-0 (Version None)
Quarter: 2010Q3

REPORT INFORMATION
  Report Type: 
  Country: None (occurrence: None)
  Receive Date: 20100723
  Receipt Date: 20090415
  Transmission Date: 20110219
  Serious: No
  Sender: FDA-Public Use
  Company Number: US-PFIZER INC-2009189091

PATIENT
  Sex: Male
  Weight: 77 kg

DRUGS (3)
  1. CHANTIX [Suspect]
     Indication: SMOKING CESSATION THERAPY
     Dosage: 0.5 MG, 1X/DAY
     Dates: start: 20090323, end: 20090323
  2. CHANTIX [Suspect]
     Indication: TOBACCO ABUSE
  3. LEXAPRO [Concomitant]
     Dosage: 20 MG DAILY
     Route: 048

REACTIONS (9)
  - ABNORMAL DREAMS [None]
  - ANXIETY [None]
  - DIZZINESS [None]
  - FEAR [None]
  - NIGHTMARE [None]
  - SEDATION [None]
  - SOMNOLENCE [None]
  - THINKING ABNORMAL [None]
  - TREMOR [None]
